FAERS Safety Report 7460328-8 (Version None)
Quarter: 2011Q2

REPORT INFORMATION
  Report Type: 
  Country: None (occurrence: None)
  Receive Date: 20110505
  Receipt Date: 20101021
  Transmission Date: 20111010
  Serious: Yes (Hospitalization)
  Sender: FDA-Public Use
  Company Number: A0889285A

PATIENT
  Age: 52 Year
  Sex: Female

DRUGS (1)
  1. AVANDAMET [Suspect]
     Indication: DIABETES MELLITUS
     Route: 048

REACTIONS (7)
  - HEADACHE [None]
  - TRANSIENT ISCHAEMIC ATTACK [None]
  - NAUSEA [None]
  - BLINDNESS [None]
  - PAIN [None]
  - DIZZINESS [None]
  - CARDIAC DISORDER [None]
